FAERS Safety Report 6475095-4 (Version None)
Quarter: 2009Q4

REPORT INFORMATION
  Report Type: 
  Country: None (occurrence: None)
  Receive Date: 20091204
  Receipt Date: 20090714
  Transmission Date: 20100525
  Serious: Yes (Hospitalization)
  Sender: FDA-Public Use
  Company Number: US-ELI_LILLY_AND_COMPANY-US200902007378

PATIENT
  Age: 61 Year
  Sex: Female
  Weight: 106.58 kg

DRUGS (15)
  1. CYMBALTA [Suspect]
     Indication: NEURALGIA
     Dosage: 30 MG, DAILY (1/D)
     Dates: start: 20070601
  2. SEROQUEL [Concomitant]
     Dosage: 50 MG, UNK
     Dates: start: 20090201
  3. SOMA [Concomitant]
     Dosage: 350 MG, UNK
  4. BENAZEPRIL W/HYDROCHLOROTHIAZIDE [Concomitant]
     Dosage: 1 D/F, DAILY (1/D)
  5. VERAPAMIL [Concomitant]
     Dosage: 240 MG, DAILY (1/D)
  6. NEXIUM [Concomitant]
     Dosage: 40 MG, DAILY (1/D)
  7. VALIUM [Concomitant]
     Dosage: 20 MG, AS NEEDED
  8. ADVAIR DISKUS 100/50 [Concomitant]
     Dosage: 1 D/F, 2/D
  9. ALBUTEROL [Concomitant]
     Dosage: 1 D/F, AS NEEDED
  10. CELEBREX [Concomitant]
     Dosage: 200 MG, AS NEEDED
  11. ALOPURINOL [Concomitant]
     Dosage: 300 MG, DAILY (1/D)
  12. FISH OIL [Concomitant]
  13. AZOPT [Concomitant]
     Dosage: 1 D/F, 3/D
  14. XALATAN [Concomitant]
     Dosage: 1 D/F, DAILY (1/D)
  15. LAMISIL [Concomitant]
     Dosage: 250 MG, DAILY (1/D)

REACTIONS (3)
  - DRUG INTERACTION [None]
  - OFF LABEL USE [None]
  - TOXIC ENCEPHALOPATHY [None]
